FAERS Safety Report 9204329 (Version 1)
Quarter: 2013Q2

REPORT INFORMATION
  Report Type: Spontaneous
  Country: GB (occurrence: GB)
  Receive Date: 20130402
  Receipt Date: 20130402
  Transmission Date: 20140414
  Serious: Yes (Hospitalization, Other)
  Sender: FDA-Public Use
  Company Number: GB-B.I. PHARMACEUTICALS,INC./RIDGEFIELD-2013-UK-00831UK

PATIENT
  Age: 64 Year
  Sex: Male
  Weight: 77 kg

DRUGS (11)
  1. PRADAXA [Suspect]
     Indication: ATRIAL FIBRILLATION
     Route: 048
     Dates: start: 20120101
  2. PRADAXA [Suspect]
     Route: 048
     Dates: start: 20130305
  3. ADRENALIN [Concomitant]
  4. AMOXICILLIN [Concomitant]
  5. CHLORHEXIDINE [Concomitant]
  6. CHLORPHENAMINE [Concomitant]
  7. CO-AMOXICLAV [Concomitant]
  8. FENTANYL [Concomitant]
  9. HYDROCORTISONE [Concomitant]
  10. PROPOFOL-LIPURO [Concomitant]
  11. ROCURONIUM [Concomitant]

REACTIONS (3)
  - Extradural haematoma [Recovered/Resolved]
  - Neck pain [Unknown]
  - Hypoaesthesia [Unknown]
